FAERS Safety Report 16178664 (Version 1)
Quarter: 2019Q2

REPORT INFORMATION
  Report Type: Spontaneous
  Country: US (occurrence: US)
  Receive Date: 20190306
  Receipt Date: 20190306
  Transmission Date: 20190711
  Serious: Yes (Hospitalization)
  Sender: FDA-Public Use
  Company Number: None

PATIENT
  Age: 35 Year
  Sex: Female

DRUGS (2)
  1. CLOBETASOL CREAM [Concomitant]
     Active Substance: CLOBETASOL
  2. GLATIRAMER 40 MG/ML [Suspect]
     Active Substance: GLATIRAMER
     Indication: MULTIPLE SCLEROSIS
     Route: 058

REACTIONS (2)
  - Injection site reaction [None]
  - Lipoatrophy [None]

NARRATIVE: CASE EVENT DATE: 20190201
